FAERS Safety Report 12446557 (Version 1)
Quarter: 2016Q2

REPORT INFORMATION
  Report Type: Spontaneous
  Country: KP (occurrence: KP)
  Receive Date: 20160608
  Receipt Date: 20160608
  Transmission Date: 20160815
  Serious: Yes (Hospitalization, Other)
  Sender: FDA-Public Use
  Company Number: KP-GLENMARK PHARMACEUTICALS INC, USA.-2016GMK023148

PATIENT
  Age: 32 Year
  Sex: Female

DRUGS (3)
  1. DROSPIRENONE/ETHINYL ESTRADIOL [Suspect]
     Active Substance: DROSPIRENONE\ETHINYL ESTRADIOL
     Indication: POLYCYSTIC OVARIES
     Dosage: UNK
     Route: 048
  2. DYDROGESTERONE [Suspect]
     Active Substance: DYDROGESTERONE
     Indication: IN VITRO FERTILISATION
     Dosage: 10 MG, UNK
     Route: 048
  3. ESTROGEN NOS [Suspect]
     Active Substance: ESTROGENS
     Indication: IN VITRO FERTILISATION
     Dosage: 1.25 MG, UNK
     Route: 048

REACTIONS (2)
  - Renal haemorrhage [Recovered/Resolved]
  - Product use issue [Unknown]
